FAERS Safety Report 12142502 (Version 2)
Quarter: 2017Q4

REPORT INFORMATION
  Report Type: Spontaneous
  Country: US (occurrence: US)
  Receive Date: 20160303
  Receipt Date: 20171122
  Transmission Date: 20180320
  Serious: No
  Sender: FDA-Public Use
  Company Number: US-PFIZER INC-2016135620

PATIENT
  Age: 59 Year
  Sex: Male
  Weight: 77.98 kg

DRUGS (1)
  1. GABAPENTIN. [Suspect]
     Active Substance: GABAPENTIN
     Dosage: UNK
     Dates: start: 2013

REACTIONS (4)
  - Malaise [Recovering/Resolving]
  - Myalgia [Unknown]
  - Drug hypersensitivity [Unknown]
  - Nausea [Unknown]
